FAERS Safety Report 21632169 (Version 1)
Quarter: 2022Q4

REPORT INFORMATION
  Report Type: Spontaneous
  Country: CH (occurrence: CH)
  Receive Date: 20221123
  Receipt Date: 20221123
  Transmission Date: 20230112
  Serious: Yes (Hospitalization)
  Sender: FDA-Public Use
  Company Number: None

PATIENT
  Age: 95 Year
  Sex: Male
  Weight: 59.2 kg

DRUGS (15)
  1. REMERON [Suspect]
     Active Substance: MIRTAZAPINE
     Dosage: 15 MILLIGRAM, QD
     Route: 048
     Dates: start: 20221027
  2. CLOMETHIAZOLE EDISYLATE [Suspect]
     Active Substance: CLOMETHIAZOLE EDISYLATE
     Dosage: 192MG 2X/D IN RESERVE
     Route: 048
     Dates: start: 20221025, end: 20221107
  3. HALDOL DECANOATE [Suspect]
     Active Substance: HALOPERIDOL DECANOATE
     Dosage: 2X/D MAXIMUM (BUT TAKEN AT LEAST ONCE A DAY); AS NECESSARY
     Route: 048
     Dates: start: 20221025
  4. QUETIAPINE [Concomitant]
     Active Substance: QUETIAPINE
     Indication: Agitation
     Dosage: ? 15:30
     Dates: start: 20221018, end: 20221024
  5. QUETIAPINE [Concomitant]
     Active Substance: QUETIAPINE
     Dosage: ? 18:00
     Dates: start: 20221018, end: 20221024
  6. QUETIAPINE [Concomitant]
     Active Substance: QUETIAPINE
     Dosage: 6.25 MG 2X/D ; AS NECESSARY
     Dates: start: 20221018, end: 20221024
  7. ENOXAPARIN SODIUM [Concomitant]
     Active Substance: ENOXAPARIN SODIUM
     Dosage: UNK
  8. CALCIUM\CHOLECALCIFEROL [Concomitant]
     Active Substance: CALCIUM\CHOLECALCIFEROL
     Dosage: UNK
  9. MOVICOL [Concomitant]
     Active Substance: POLYETHYLENE GLYCOL 3350\POTASSIUM CHLORIDE\SODIUM BICARBONATE\SODIUM CHLORIDE
     Dosage: UNK
  10. SODIUM PICOSULFATE [Concomitant]
     Active Substance: SODIUM PICOSULFATE
     Dosage: UNK
     Route: 048
  11. SODIUM PHOSPHATE [Concomitant]
     Active Substance: SODIUM PHOSPHATE
     Dosage: UNK
  12. TORSEMIDE [Concomitant]
     Active Substance: TORSEMIDE
     Dosage: UNK
  13. MORPHINE [Concomitant]
     Active Substance: MORPHINE
     Dosage: AS NECESSARY
     Route: 058
  14. DAFALGAN [Concomitant]
     Active Substance: ACETAMINOPHEN
     Dosage: AS NECESSARY
  15. FREKA-CLYSS [Concomitant]
     Dosage: AS NECESSARY

REACTIONS (3)
  - Aspiration [Recovering/Resolving]
  - Hypoxia [Recovered/Resolved]
  - Pyrexia [Recovered/Resolved]

NARRATIVE: CASE EVENT DATE: 20221030
